FAERS Safety Report 6531687-5 (Version None)
Quarter: 2010Q1

REPORT INFORMATION
  Report Type: 
  Country: None (occurrence: None)
  Receive Date: 20100108
  Receipt Date: 20100105
  Transmission Date: 20100710
  Serious: Yes (Other)
  Sender: FDA-Public Use
  Company Number: IT-B.I. PHARMACEUTICALS,INC./RIDGEFIELD-2010-DE-00044GD

PATIENT
  Age: 59 Year
  Sex: Female

DRUGS (4)
  1. IPRATROPIUM BROMIDE [Suspect]
     Indication: BRONCHOSPASM
     Dosage: 500 MCG
     Route: 055
  2. ALBUTEROL [Suspect]
     Indication: BRONCHOSPASM
     Dosage: 2.5 MG
     Route: 055
  3. METHYLPREDNISOLONE [Suspect]
     Indication: BRONCHOSPASM
     Dosage: 250 MG
  4. PANTOPRAZOLE [Concomitant]
     Indication: GASTROOESOPHAGEAL REFLUX DISEASE

REACTIONS (1)
  - RESPIRATORY DISTRESS [None]
